FAERS Safety Report 5431988-8 (Version None)
Quarter: 2007Q3

REPORT INFORMATION
  Report Type: 
  Country: None (occurrence: None)
  Receive Date: 20070731
  Receipt Date: 20070609
  Transmission Date: 20080115
  Serious: No
  Sender: FDA-Public Use
  Company Number: US200706002244

PATIENT
  Age: 66 Year
  Sex: 0
  Weight: 228 kg

DRUGS (5)
  1. BYETTA [Suspect]
     Indication: TYPE 2 DIABETES MELLITUS
     Dosage: 5 UG, 2/D, SUBCUTANEOUS; 10 UG, 2/D, SUBCUTANEOUS
     Route: 058
     Dates: start: 20070401, end: 20070522
  2. BYETTA [Suspect]
     Indication: TYPE 2 DIABETES MELLITUS
     Dosage: 5 UG, 2/D, SUBCUTANEOUS; 10 UG, 2/D, SUBCUTANEOUS
     Route: 058
     Dates: start: 20070523, end: 20070609
  3. EXENATIDE PEN (EXENATIDE PEN) [Concomitant]
  4. AMARYL [Concomitant]
  5. METFORMIN HCL [Concomitant]

REACTIONS (9)
  - ASTHENIA [None]
  - BLOOD GLUCOSE DECREASED [None]
  - FEELING COLD [None]
  - HYPERHIDROSIS [None]
  - NERVOUSNESS [None]
  - SOMNOLENCE [None]
  - STOMACH DISCOMFORT [None]
  - VISION BLURRED [None]
  - VOMITING [None]
